FAERS Safety Report 7022190-7 (Version None)
Quarter: 2010Q3

REPORT INFORMATION
  Report Type: 
  Country: None (occurrence: None)
  Receive Date: 20100930
  Receipt Date: 20100816
  Transmission Date: 20110219
  Serious: Yes (Hospitalization, Disabling)
  Sender: FDA-Public Use
  Company Number: US-JNJFOC-20090104461

PATIENT
  Sex: Male
  Weight: 75 kg

DRUGS (6)
  1. INVEGA [Suspect]
     Indication: BIPOLAR DISORDER
     Route: 048
  2. DEPAKOTE [Concomitant]
  3. ZYRTEC [Concomitant]
  4. SINGULAIR [Concomitant]
  5. CATAPRES [Concomitant]
  6. LITHIUM [Concomitant]

REACTIONS (6)
  - COMPARTMENT SYNDROME [None]
  - DRUG ADMINISTRATION ERROR [None]
  - EXTREMITY NECROSIS [None]
  - LEG AMPUTATION [None]
  - NEUROLEPTIC MALIGNANT SYNDROME [None]
  - RHABDOMYOLYSIS [None]
